FAERS Safety Report 25048711 (Version 1)
Quarter: 2025Q1

REPORT INFORMATION
  Report Type: Spontaneous
  Country: ES (occurrence: ES)
  Receive Date: 20250307
  Receipt Date: 20250307
  Transmission Date: 20250408
  Serious: Yes (Other)
  Sender: CHIESI
  Company Number: ES-CHIESI-2025CHF01467

PATIENT
  Sex: Male
  Weight: 84 kg

DRUGS (1)
  1. METRELEPTIN [Suspect]
     Active Substance: METRELEPTIN
     Indication: Congenital generalised lipodystrophy

REACTIONS (6)
  - Leukopenia [Unknown]
  - Neutropenia [Unknown]
  - Glycosylated haemoglobin increased [Unknown]
  - Polycythaemia [Unknown]
  - Blood triglycerides increased [Unknown]
  - Weight decreased [Unknown]
